FAERS Safety Report 7931631-X (Version None)
Quarter: 2011Q4

REPORT INFORMATION
  Report Type: 
  Country: None (occurrence: None)
  Receive Date: 20111121
  Receipt Date: 20111107
  Transmission Date: 20120403
  Serious: Yes (Hospitalization, Disabling)
  Sender: FDA-Public Use
  Company Number: PHHO2011KR018488

PATIENT
  Sex: Female
  Weight: 43 kg

DRUGS (2)
  1. AFINITOR [Suspect]
     Indication: METASTATIC RENAL CELL CARCINOMA
     Dosage: 10 MG, QD
     Route: 048
     Dates: start: 20101013
  2. OXYCODONE HCL [Concomitant]
     Indication: PAIN

REACTIONS (2)
  - PERINEAL PAIN [None]
  - URINARY RETENTION [None]
